FAERS Safety Report 17975564 (Version 8)
Quarter: 2020Q3

REPORT INFORMATION
  Report Type: Report from Study
  Country: JP (occurrence: JP)
  Receive Date: 20200702
  Receipt Date: 20200819
  Transmission Date: 20201103
  Serious: Yes (Death, Hospitalization, Other)
  Sender: FDA-Public Use
  Company Number: JP-ACTELION-A-CH2020-206689

PATIENT
  Age: 71 Year
  Sex: Female
  Weight: 40.4 kg

DRUGS (31)
  1. ZOLPIDEM TARTRATE. [Concomitant]
     Active Substance: ZOLPIDEM TARTRATE
     Dosage: 5 MG, QD
     Dates: start: 20200727
  2. LIXIANA [Concomitant]
     Active Substance: EDOXABAN TOSYLATE
     Dosage: 30 MG, OD
     Dates: start: 20200626, end: 20200630
  3. KALIMATE [Concomitant]
     Active Substance: CALCIUM POLYSTYRENE SULFONATE
     Indication: HYPERKALAEMIA
     Dosage: 660 MG, QD
     Dates: end: 20200713
  4. BELSOMRA [Concomitant]
     Active Substance: SUVOREXANT
     Indication: INSOMNIA
     Dosage: 15 MG, QD
     Dates: end: 20200713
  5. KARI UNI [Concomitant]
     Indication: CATARACT
     Dosage: UNK
  6. WHITE PETROLATUM [Concomitant]
     Active Substance: PETROLATUM
     Indication: SKIN DISORDER PROPHYLAXIS
     Dosage: UNK
     Dates: start: 20200716
  7. MIYA?BM [Concomitant]
     Active Substance: CLOSTRIDIUM BUTYRICUM SPORES STRAIN M-55
     Indication: SUPERIOR MESENTERIC ARTERY SYNDROME
     Dosage: 120 MG, QD
     Dates: end: 20200713
  8. LANSOPRAZOLE. [Concomitant]
     Active Substance: LANSOPRAZOLE
     Indication: GASTROOESOPHAGEAL REFLUX DISEASE
     Dosage: 15 MG, QD
     Dates: end: 20200713
  9. ADEMPAS [Concomitant]
     Active Substance: RIOCIGUAT
     Dosage: 7.5 MG, QD
     Dates: start: 20200721, end: 20200802
  10. ADEMPAS [Concomitant]
     Active Substance: RIOCIGUAT
     Dosage: UNK
     Dates: start: 20200804, end: 20200806
  11. ZOLPIDEM TARTRATE. [Concomitant]
     Active Substance: ZOLPIDEM TARTRATE
     Indication: INSOMNIA
     Dosage: 5 MG, QD
     Dates: end: 20200713
  12. DERMOSOL G [Concomitant]
     Indication: PRURITUS
     Dosage: UNK
  13. CALONAL [Concomitant]
     Active Substance: ACETAMINOPHEN
     Indication: HEADACHE
     Dosage: UNK
     Dates: end: 20200713
  14. SELEXIPAG [Suspect]
     Active Substance: SELEXIPAG
     Dosage: 200 MCG, BID
     Route: 048
     Dates: start: 20190228
  15. LIXIANA [Concomitant]
     Active Substance: EDOXABAN TOSYLATE
     Dosage: 30 MG, OD
     Dates: start: 20200702, end: 20200712
  16. ISOTONIC SODIUM CHLORIDE SOLUTION [Concomitant]
     Active Substance: SODIUM CHLORIDE
     Indication: DEHYDRATION
     Dosage: UNK
     Dates: start: 20200701
  17. SELEXIPAG [Suspect]
     Active Substance: SELEXIPAG
     Indication: PULMONARY HYPERTENSION
     Dosage: 1600 MCG, BID
     Route: 048
     Dates: start: 20190819, end: 20200713
  18. SELEXIPAG [Suspect]
     Active Substance: SELEXIPAG
     Dosage: 1600 MCG, BID
     Route: 048
     Dates: start: 20190719
  19. LIXIANA [Concomitant]
     Active Substance: EDOXABAN TOSYLATE
     Dosage: 30 MG, OD
     Dates: start: 20200728
  20. FEBURIC [Concomitant]
     Active Substance: FEBUXOSTAT
     Indication: PULMONARY HYPERTENSION
     Dosage: 10 MG, QD
     Dates: end: 20200713
  21. OLOPATADINE HYDROCHLORIDE. [Concomitant]
     Active Substance: OLOPATADINE HYDROCHLORIDE
     Indication: PRURITUS
     Dosage: 100 MG, QD
     Dates: end: 20200713
  22. ADEMPAS [Concomitant]
     Active Substance: RIOCIGUAT
     Indication: PULMONARY HYPERTENSION
     Dosage: 7.5 MG, QD
     Dates: end: 20200713
  23. ALESION [Concomitant]
     Active Substance: EPINASTINE HYDROCHLORIDE
     Indication: ALLERGY PROPHYLAXIS
     Dosage: UNK
  24. LIXIANA [Concomitant]
     Active Substance: EDOXABAN TOSYLATE
     Indication: PULMONARY HYPERTENSION
     Dosage: 30 MG, OD
     Dates: end: 20200622
  25. ADEMPAS [Concomitant]
     Active Substance: RIOCIGUAT
     Dosage: 7.5 MG, QD
     Dates: start: 20200717, end: 20200718
  26. DIART [Concomitant]
     Active Substance: AZOSEMIDE
     Indication: PULMONARY HYPERTENSION
     Dosage: 30 MG, QD
     Dates: end: 20200701
  27. SAMSCA [Concomitant]
     Active Substance: TOLVAPTAN
     Indication: PULMONARY HYPERTENSION
     Dosage: 7.5 MG, QD
     Dates: end: 20200713
  28. STIBRON [Concomitant]
     Indication: PRURITUS
     Dosage: UNK
  29. MAGMITT [Concomitant]
     Active Substance: MAGNESIUM OXIDE
     Indication: SUPERIOR MESENTERIC ARTERY SYNDROME
     Dosage: 660 MCG, QD
     Dates: end: 20200625
  30. PROMAC [POLAPREZINC] [Concomitant]
     Active Substance: POLAPREZINC
     Indication: GASTROOESOPHAGEAL REFLUX DISEASE
     Dosage: 0.5 G, QD
     Dates: end: 20200626
  31. PROMAC [POLAPREZINC] [Concomitant]
     Active Substance: POLAPREZINC
     Dosage: 0.5 G, QD
     Dates: start: 20200627, end: 20200713

REACTIONS (43)
  - Blood lactate dehydrogenase increased [Not Recovered/Not Resolved]
  - Faeces discoloured [Not Recovered/Not Resolved]
  - Electrolyte imbalance [Unknown]
  - Biopsy bone marrow [Not Recovered/Not Resolved]
  - Anaemia [Not Recovered/Not Resolved]
  - Pancreatitis [Not Recovered/Not Resolved]
  - Hypoglycaemia [Not Recovered/Not Resolved]
  - Pleural effusion [Unknown]
  - Multiple organ dysfunction syndrome [Fatal]
  - White blood cell count increased [Fatal]
  - Post procedural complication [Not Recovered/Not Resolved]
  - Blood pressure decreased [Not Recovered/Not Resolved]
  - Abdominal pain [Not Recovered/Not Resolved]
  - Acidosis [Unknown]
  - Cholangitis [Unknown]
  - Alanine aminotransferase increased [Unknown]
  - Blood alkaline phosphatase increased [Unknown]
  - Pulmonary congestion [Unknown]
  - Oxygen saturation decreased [Not Recovered/Not Resolved]
  - Dehydration [Not Recovered/Not Resolved]
  - Haematochezia [Not Recovered/Not Resolved]
  - Renal impairment [Unknown]
  - Myelofibrosis [Unknown]
  - Pulmonary mass [Unknown]
  - Concomitant disease progression [Unknown]
  - Sepsis [Fatal]
  - Melaena [Not Recovered/Not Resolved]
  - Haemorrhage [Not Recovered/Not Resolved]
  - Superior mesenteric artery syndrome [Not Recovered/Not Resolved]
  - Duodenal neoplasm [Unknown]
  - Adrenal insufficiency [Unknown]
  - Platelet count decreased [Not Recovered/Not Resolved]
  - Haematoma [Not Recovered/Not Resolved]
  - Nausea [Not Recovered/Not Resolved]
  - Hepatosplenomegaly [Unknown]
  - Pericardial effusion [Not Recovered/Not Resolved]
  - Packed red blood cell transfusion [Unknown]
  - Aspartate aminotransferase increased [Unknown]
  - Septic shock [Fatal]
  - Platelet transfusion [Not Recovered/Not Resolved]
  - Vomiting [Not Recovered/Not Resolved]
  - Pyrexia [Fatal]
  - Hypersplenism [Not Recovered/Not Resolved]

NARRATIVE: CASE EVENT DATE: 20190909
